FAERS Safety Report 19709893 (Version 9)
Quarter: 2022Q3

REPORT INFORMATION
  Report Type: Other
  Country: CA (occurrence: None)
  Receive Date: 20210816
  Receipt Date: 20220701
  Transmission Date: 20221027
  Serious: Yes (Hospitalization, Other)
  Sender: FDA-Public Use
  Company Number: CA-ROCHE-2887785

PATIENT
  Age: 36 Year
  Sex: Female

DRUGS (4)
  1. OCREVUS [Suspect]
     Active Substance: OCRELIZUMAB
     Indication: Relapsing-remitting multiple sclerosis
     Dosage: 300 MG AT DAY 0 AND 14, THEN 600 MG EVERY 6 MONTH
     Route: 042
     Dates: start: 20200213
  2. CANDESARTAN [Concomitant]
     Active Substance: CANDESARTAN
     Dosage: OD
  3. COVID-19 VACCINE [Concomitant]
  4. CORTISONE [Concomitant]
     Active Substance: CORTISONE

REACTIONS (6)
  - Cholelithiasis [Recovering/Resolving]
  - Gallbladder disorder [Recovered/Resolved]
  - Large intestine perforation [Recovered/Resolved]
  - Bedridden [Recovered/Resolved]
  - Asthenia [Recovered/Resolved]
  - Vomiting [Recovered/Resolved]

NARRATIVE: CASE EVENT DATE: 20210620
